FAERS Safety Report 8513618-1 (Version None)
Quarter: 2012Q3

REPORT INFORMATION
  Report Type: 
  Country: None (occurrence: None)
  Receive Date: 20120717
  Receipt Date: 20120712
  Transmission Date: 20120928
  Serious: No
  Sender: FDA-Public Use
  Company Number: US-PFIZER INC-2012169429

PATIENT
  Sex: Female
  Weight: 68.027 kg

DRUGS (6)
  1. IBUPROFEN [Suspect]
     Indication: SPINAL COLUMN STENOSIS
     Dosage: UNK, 3X/DAY
     Dates: start: 20120605, end: 20120607
  2. TRAMADOL HYDROCHLORIDE [Suspect]
     Indication: NEURALGIA
  3. TRAMADOL HYDROCHLORIDE [Suspect]
     Indication: SPINAL COLUMN STENOSIS
     Dosage: 50 MG, 3X/DAY
     Dates: start: 20120604, end: 20120607
  4. IBUPROFEN [Suspect]
     Indication: NEURALGIA
  5. LYRICA [Suspect]
     Indication: NEURALGIA
  6. LYRICA [Suspect]
     Indication: SPINAL COLUMN STENOSIS
     Dosage: 50 MG, DAILY
     Route: 048
     Dates: start: 20120618, end: 20120622

REACTIONS (2)
  - DRUG INEFFECTIVE [None]
  - VISION BLURRED [None]
